FAERS Safety Report 13081629 (Version 1)
Quarter: 2017Q1

REPORT INFORMATION
  Report Type: Report from Study
  Country: US (occurrence: US)
  Receive Date: 20170103
  Receipt Date: 20170103
  Transmission Date: 20170428
  Serious: Yes (Hospitalization, Other)
  Sender: FDA-Public Use
  Company Number: US-BAYER-2016-184710

PATIENT
  Age: 66 Year
  Sex: Male

DRUGS (2)
  1. NEXAVAR [Suspect]
     Active Substance: SORAFENIB
     Indication: HEPATOCELLULAR CARCINOMA
     Dosage: 200 MG, BID
     Route: 048
     Dates: start: 20160912, end: 20161002
  2. NEXAVAR [Suspect]
     Active Substance: SORAFENIB
     Indication: HEPATOCELLULAR CARCINOMA
     Dosage: 200 MG, QD
     Route: 048
     Dates: start: 20161003

REACTIONS (16)
  - Nausea [Not Recovered/Not Resolved]
  - Peripheral swelling [None]
  - Fatigue [None]
  - Drug dose omission [None]
  - Dyspnoea [None]
  - Haematochezia [None]
  - Fatigue [None]
  - Weight decreased [None]
  - Abdominal pain [None]
  - Paracentesis [None]
  - Eating disorder [None]
  - Abdominal distension [None]
  - Activities of daily living impaired [None]
  - Decreased appetite [Not Recovered/Not Resolved]
  - Off label use [None]
  - Heart rate increased [None]

NARRATIVE: CASE EVENT DATE: 2016
